FAERS Safety Report 9716854 (Version 3)
Quarter: 2014Q3

REPORT INFORMATION
  Report Type: Spontaneous
  Country: DE (occurrence: None)
  Receive Date: 20131125
  Receipt Date: 20140707
  Transmission Date: 20150326
  Serious: Yes (Hospitalization)
  Sender: FDA-Public Use
  Company Number: TTX201300102

PATIENT
  Sex: Male

DRUGS (11)
  1. VINCRISTINE SULFATE. [Suspect]
     Active Substance: VINCRISTINE SULFATE
     Indication: NON-HODGKIN^S LYMPHOMA
     Route: 042
     Dates: end: 20130611
  2. RITUXIMAB (RITUXIMAB) [Concomitant]
     Active Substance: RITUXIMAB
  3. ZYLORIC (ALLOPRUINOL) [Concomitant]
  4. CIPROBAY (CIPROFLOXACI LACTATE) [Concomitant]
  5. PREDNISOLONE (PREDNISOLONE ACETAE) [Concomitant]
  6. PANTOPRAZOLE (PRNTOPRAZOLE) [Concomitant]
  7. CYCLOPHOSPHAMIDE (CYCLOPHOSPHAMIDE) [Concomitant]
     Active Substance: CYCLOPHOSPHAMIDE
  8. DOXORUBICIN [Suspect]
     Active Substance: DOXORUBICIN
     Indication: NON-HODGKIN^S LYMPHOMA
     Route: 042
     Dates: end: 20140611
  9. AMPHOTERICIN B (AMPOHOTERICIN B) [Concomitant]
  10. ACICLOVIR (ACICLOVIR SODIUM) [Concomitant]
  11. FILGRASTIM (FILGRASTIM) [Concomitant]

REACTIONS (3)
  - Dizziness [None]
  - Dehydration [None]
  - Presyncope [None]

NARRATIVE: CASE EVENT DATE: 20130620
